FAERS Safety Report 8901669 (Version 1)
Quarter: 2012Q4

REPORT INFORMATION
  Report Type: 
  Country: US (occurrence: None)
  Receive Date: 20121108
  Receipt Date: 20121108
  Transmission Date: 20130627
  Serious: Yes (Hospitalization)
  Sender: FDA-Public Use
  Company Number: None

PATIENT

DRUGS (6)
  1. DAUNORUBICIN [Suspect]
     Dates: end: 20121030
  2. DEXAMETHASONE [Suspect]
     Dates: end: 20121030
  3. METHOTREXATE [Suspect]
     Dates: end: 20121023
  4. PEG-L-ASPARAGINASE (PEGASPARGASE, ONCOSPAR) [Suspect]
     Dates: end: 20121019
  5. VINCRISTINE SULFATE [Suspect]
     Dates: end: 20121030
  6. CYTARABINE [Suspect]
     Dates: end: 20121015

REACTIONS (14)
  - Pyrexia [None]
  - Neutropenia [None]
  - Skin lesion [None]
  - Skin necrosis [None]
  - Erythema [None]
  - Tenderness [None]
  - Lung infiltration [None]
  - Lung infection [None]
  - Lung disorder [None]
  - Inflammation [None]
  - Fungal skin infection [None]
  - Renal disorder [None]
  - Zygomycosis [None]
  - Fungal infection [None]
